FAERS Safety Report 4930796-1 (Version None)
Quarter: 2006Q1

REPORT INFORMATION
  Report Type: 
  Country: None (occurrence: None)
  Receive Date: 20060227
  Receipt Date: 20060207
  Transmission Date: 20060701
  Serious: Yes (Hospitalization)
  Sender: FDA-Public Use
  Company Number: 222336

PATIENT
  Age: 71 Year
  Sex: Male

DRUGS (9)
  1. AVASTIN [Suspect]
     Indication: COLORECTAL CANCER
     Dosage: 637 MG, Q3W, INTRAVENOUS
     Route: 042
     Dates: start: 20051021
  2. CAPECITABINE (CAPECITABINE) [Suspect]
     Indication: COLORECTAL CANCER
     Dosage: 4000 MG, ORAL
     Route: 048
     Dates: start: 20051021
  3. OXALIPLATIN (OXALIPLATIN) [Suspect]
     Indication: COLORECTAL CANCER
     Dosage: 260 MG, Q3W, INTRAVENOUS
     Route: 042
     Dates: start: 20051021
  4. CETUXIMAB(CETUXIMAB) [Suspect]
     Indication: COLORECTAL CANCER
     Dosage: 500 MG, 1/WEEK, INTRAVENOUS
     Route: 042
     Dates: start: 20051021
  5. ATENOLOL [Concomitant]
  6. HYDROCHLOROTHIAZIDE [Concomitant]
  7. GOPTEN [Concomitant]
  8. MAALOX (ALUMINUM HYDROXIDE, MAGNESIUM HYDROXIDE) [Concomitant]
  9. ASCAL (CARBASPIRIN CALCIUM) [Concomitant]

REACTIONS (8)
  - ANAEMIA [None]
  - BLOOD CREATININE INCREASED [None]
  - BLOOD UREA INCREASED [None]
  - DEHYDRATION [None]
  - FATIGUE [None]
  - HYPOMAGNESAEMIA [None]
  - NAUSEA [None]
  - ORAL INTAKE REDUCED [None]
